FAERS Safety Report 13532775 (Version 1)
Quarter: 2017Q2

REPORT INFORMATION
  Report Type: Spontaneous
  Country: IT (occurrence: IT)
  Receive Date: 20170510
  Receipt Date: 20170510
  Transmission Date: 20170830
  Serious: Yes (Other)
  Sender: FDA-Public Use
  Company Number: IT-PURDUE PHARMA-GBR-2017-0044494

PATIENT
  Age: 99 Year
  Sex: Female

DRUGS (5)
  1. TARGIN [Suspect]
     Active Substance: NALOXONE HYDROCHLORIDE\OXYCODONE HYDROCHLORIDE
     Indication: ANALGESIC THERAPY
     Dosage: UNK
     Route: 048
     Dates: start: 20160509, end: 20160509
  2. CLEXANE [Concomitant]
     Active Substance: ENOXAPARIN SODIUM
     Dosage: 2000 IU, AXA/0.2 ML
  3. PANTOPRAZOLE [Concomitant]
     Active Substance: PANTOPRAZOLE
     Dosage: 20 MG, UNK
     Route: 048
  4. KANRENOL [Suspect]
     Active Substance: CANRENOATE POTASSIUM
     Indication: HYPERTENSION
     Dosage: 100 MG, DAILY
     Route: 048
     Dates: start: 20160101, end: 20160510
  5. LASIX [Concomitant]
     Active Substance: FUROSEMIDE

REACTIONS (5)
  - Hyperkalaemia [Recovered/Resolved]
  - Retching [Recovered/Resolved]
  - Abdominal pain [Recovered/Resolved]
  - Abdominal pain upper [Recovered/Resolved]
  - Nausea [Recovered/Resolved]

NARRATIVE: CASE EVENT DATE: 20160509
